FAERS Safety Report 5726592-8 (Version None)
Quarter: 2008Q2

REPORT INFORMATION
  Report Type: 
  Country: None (occurrence: None)
  Receive Date: 20080502
  Receipt Date: 20080424
  Transmission Date: 20081010
  Serious: Yes (Disabling, Other)
  Sender: FDA-Public Use
  Company Number: US-JNJFOC-20080407334

PATIENT
  Sex: Female
  Weight: 117.94 kg

DRUGS (4)
  1. DURAGESIC-100 [Suspect]
     Route: 062
  2. DURAGESIC-100 [Suspect]
     Route: 062
  3. DURAGESIC-100 [Suspect]
     Indication: PAIN
     Route: 062
  4. VICODIN [Concomitant]
     Indication: PAIN
     Dosage: 2-3 / DAY
     Route: 048

REACTIONS (9)
  - CHEST DISCOMFORT [None]
  - CHILLS [None]
  - DISABILITY [None]
  - DRUG EFFECT DECREASED [None]
  - DYSGEUSIA [None]
  - HYPERHIDROSIS [None]
  - INCORRECT DRUG ADMINISTRATION DURATION [None]
  - STEROID THERAPY [None]
  - WEIGHT DECREASED [None]
